FAERS Safety Report 14911612 (Version 1)
Quarter: 2018Q2

REPORT INFORMATION
  Report Type: Spontaneous
  Country: US (occurrence: US)
  Receive Date: 20180518
  Receipt Date: 20180518
  Transmission Date: 20180711
  Serious: No
  Sender: FDA-Public Use
  Company Number: US-JNJFOC-20180505739

PATIENT
  Sex: Male

DRUGS (17)
  1. AZASITE [Concomitant]
     Active Substance: AZITHROMYCIN MONOHYDRATE
     Route: 065
  2. RESTORIL [Concomitant]
     Active Substance: TEMAZEPAM
     Route: 065
  3. DELTASON [Concomitant]
     Active Substance: PREDNISONE
     Route: 065
  4. NORVASC [Concomitant]
     Active Substance: AMLODIPINE BESYLATE
     Route: 065
  5. TENORMIN [Concomitant]
     Active Substance: ATENOLOL
     Route: 065
  6. LAC HYDRIN [Concomitant]
     Route: 065
  7. VITAMIN D3 [Concomitant]
     Active Substance: CHOLECALCIFEROL
     Route: 065
  8. PERCOCET [Concomitant]
     Active Substance: ACETAMINOPHEN\OXYCODONE HYDROCHLORIDE
     Route: 065
  9. PROTONIX [Concomitant]
     Active Substance: PANTOPRAZOLE SODIUM
     Route: 065
  10. COREG [Concomitant]
     Active Substance: CARVEDILOL
     Route: 065
  11. PRAVACHOL [Concomitant]
     Active Substance: PRAVASTATIN SODIUM
     Route: 065
  12. RESTORIL [Concomitant]
     Active Substance: TEMAZEPAM
     Route: 065
  13. TOBREX [Concomitant]
     Active Substance: TOBRAMYCIN
     Route: 065
  14. PLAVIX [Concomitant]
     Active Substance: CLOPIDOGREL BISULFATE
     Route: 065
  15. BENICAR HCT [Concomitant]
     Active Substance: HYDROCHLOROTHIAZIDE\OLMESARTAN MEDOXOMIL
     Route: 065
  16. ZYTIGA [Suspect]
     Active Substance: ABIRATERONE ACETATE
     Indication: HORMONE-REFRACTORY PROSTATE CANCER
     Route: 048
  17. COREG [Concomitant]
     Active Substance: CARVEDILOL
     Route: 065

REACTIONS (1)
  - Adverse event [Unknown]
